FAERS Safety Report 20462300 (Version 3)
Quarter: 2022Q4

REPORT INFORMATION
  Report Type: Report from Study
  Country: AU (occurrence: AU)
  Receive Date: 20220211
  Receipt Date: 20221013
  Transmission Date: 20230113
  Serious: Yes (Hospitalization)
  Sender: FDA-Public Use
  Company Number: AU-PFIZER INC-202200186757

PATIENT
  Age: 25 Year
  Sex: Male
  Weight: 73 kg

DRUGS (19)
  1. PALBOCICLIB [Suspect]
     Active Substance: PALBOCICLIB
     Indication: Lung neoplasm malignant
     Dosage: 100 MG, CYCLIC  (43 DAYS - CYCLE 2)
     Route: 048
     Dates: start: 20211216, end: 20220128
  2. AVELUMAB [Suspect]
     Active Substance: AVELUMAB
     Indication: Lung neoplasm malignant
     Dosage: 685 MG, CYCLIC  (2 DAYS - CYCLE 2)
     Route: 042
     Dates: start: 20220125, end: 20220127
  3. LEVETIRACETAM [Concomitant]
     Active Substance: LEVETIRACETAM
     Indication: Chronic disease
     Dosage: 1000 MG, ONCE A DAY
     Route: 048
     Dates: start: 20210413
  4. OXYCODONE [Concomitant]
     Active Substance: OXYCODONE
     Indication: Lung neoplasm malignant
     Dosage: 5 MG, AS NEEDED
     Route: 048
     Dates: start: 20210601
  5. ACETAMINOPHEN [Concomitant]
     Active Substance: ACETAMINOPHEN
     Indication: Lung neoplasm malignant
     Dosage: 500 MG, TWICE A DAY
     Route: 048
     Dates: start: 20210601
  6. METOCLOPRAMIDE [Concomitant]
     Active Substance: METOCLOPRAMIDE
     Indication: Lung neoplasm malignant
     Dosage: 10 MG, TWICE A DAY
     Route: 048
     Dates: start: 20210601
  7. NALOXONE HYDROCHLORIDE\OXYCODONE HYDROCHLORIDE [Concomitant]
     Active Substance: NALOXONE HYDROCHLORIDE\OXYCODONE HYDROCHLORIDE
     Indication: Lung neoplasm malignant
     Dosage: 2.5/1.25MG, 2X/DAY
     Route: 048
     Dates: start: 20210601
  8. NALOXONE HYDROCHLORIDE\OXYCODONE HYDROCHLORIDE [Concomitant]
     Active Substance: NALOXONE HYDROCHLORIDE\OXYCODONE HYDROCHLORIDE
     Dosage: 10/5MG, 2X/DAY
     Route: 048
     Dates: start: 20220701
  9. MODERNA COVID-19 VACCINE [Concomitant]
     Active Substance: ELASOMERAN
     Indication: Prophylaxis
     Dosage: DOSE NUMBER UNKNOWN, SINGLE
     Route: 030
     Dates: start: 20220214, end: 20220214
  10. MOVICOL [Concomitant]
     Active Substance: POLYETHYLENE GLYCOL 3350\POTASSIUM CHLORIDE\SODIUM BICARBONATE\SODIUM CHLORIDE
     Indication: Adverse event
     Dosage: 1 SATCHET, TWICE A DAY
     Route: 048
     Dates: start: 20220601
  11. DOCUSATE [Concomitant]
     Active Substance: DOCUSATE
     Indication: Adverse event
     Dosage: 100 MG, DAILY
     Route: 048
     Dates: start: 20220601
  12. SENNOSIDE B [Concomitant]
     Active Substance: SENNOSIDE B
     Indication: Adverse event
     Dosage: 16 MG, ONCE A DAY
     Route: 048
     Dates: start: 20220601
  13. OXYCODONE HYDROCHLORIDE [Concomitant]
     Active Substance: OXYCODONE HYDROCHLORIDE
     Indication: Lung neoplasm malignant
     Dosage: 10 MG, ONCE A DAY
     Route: 048
     Dates: start: 20220701
  14. ONDANSETRON [Concomitant]
     Active Substance: ONDANSETRON
     Indication: Prophylaxis
     Dosage: 8 MG, AS NEEDED
     Route: 060
     Dates: start: 20220714
  15. PANTOPRAZOLE [Concomitant]
     Active Substance: PANTOPRAZOLE
     Indication: Lung neoplasm malignant
     Dosage: 40 MG, DAILY
     Route: 048
     Dates: start: 20220714
  16. HALOPERIDOL [Concomitant]
     Active Substance: HALOPERIDOL
     Indication: Lung neoplasm malignant
     Dosage: 0.5 MG, AS NEEDED
     Route: 048
     Dates: start: 20220811
  17. DILAUDID [Concomitant]
     Active Substance: HYDROMORPHONE HYDROCHLORIDE
     Indication: Lung neoplasm malignant
     Dosage: 4 MG, AS NEEDED
     Route: 048
     Dates: start: 20220826
  18. HYDROMORPHONE HYDROCHLORIDE [Concomitant]
     Active Substance: HYDROMORPHONE HYDROCHLORIDE
     Indication: Lung neoplasm malignant
     Dosage: 20 MG, DAILY
     Route: 048
     Dates: start: 20220826
  19. PREGABALIN [Concomitant]
     Active Substance: PREGABALIN
     Indication: Lung neoplasm malignant
     Dosage: 75 MG, 2X/DAY
     Route: 048
     Dates: start: 20220829

REACTIONS (1)
  - Abdominal pain [Recovered/Resolved with Sequelae]

NARRATIVE: CASE EVENT DATE: 20220128
